FAERS Safety Report 5375151-8 (Version None)
Quarter: 2007Q2

REPORT INFORMATION
  Report Type: 
  Country: None (occurrence: None)
  Receive Date: 20070629
  Receipt Date: 20070412
  Transmission Date: 20071010
  Serious: No
  Sender: FDA-Public Use
  Company Number: US-ASTRAZENECA-2007UW07199

PATIENT
  Age: 71 Year
  Sex: Male
  Weight: 74.4 kg

DRUGS (2)
  1. ZOLADEX [Suspect]
     Indication: PROSTATE CANCER
     Route: 058
  2. LUPRON [Concomitant]
     Indication: PROSTATE CANCER

REACTIONS (1)
  - PROSTATIC SPECIFIC ANTIGEN INCREASED [None]
